FAERS Safety Report 6816902-2 (Version None)
Quarter: 2010Q2

REPORT INFORMATION
  Report Type: 
  Country: None (occurrence: None)
  Receive Date: 20100630
  Receipt Date: 20100616
  Transmission Date: 20101027
  Serious: Yes (Other)
  Sender: FDA-Public Use
  Company Number: 1000014677

PATIENT
  Age: 92 Year
  Sex: Male

DRUGS (3)
  1. MEMANTINE HCL [Suspect]
     Indication: DEMENTIA
     Dosage: 20 MG (20 MG, 1 IN 1 D), ORAL
     Route: 048
     Dates: start: 20060101
  2. TRIATEC [Concomitant]
  3. GLYBURIDE [Concomitant]

REACTIONS (1)
  - INAPPROPRIATE ANTIDIURETIC HORMONE SECRETION [None]
